FAERS Safety Report 24723821 (Version 2)
Quarter: 2024Q4

REPORT INFORMATION
  Report Type: Report from Study
  Country: CN (occurrence: CN)
  Receive Date: 20241211
  Receipt Date: 20241220
  Transmission Date: 20250115
  Serious: Yes (Other)
  Sender: RIGEL PHARMACEUTICALS
  Company Number: CN-RIGEL Pharmaceuticals, INC-20241200056

PATIENT
  Sex: Male

DRUGS (2)
  1. PRALSETINIB [Suspect]
     Active Substance: PRALSETINIB
     Indication: Lung adenocarcinoma
     Dosage: 400 MG
     Route: 048
     Dates: start: 202410, end: 202410
  2. PRALSETINIB [Suspect]
     Active Substance: PRALSETINIB
     Dosage: 200 MG
     Route: 048
     Dates: start: 202410, end: 202410

REACTIONS (4)
  - Tuberculosis [Unknown]
  - Hepatic function abnormal [Recovering/Resolving]
  - White blood cell count decreased [Recovering/Resolving]
  - Platelet count decreased [Recovering/Resolving]

NARRATIVE: CASE EVENT DATE: 20241001
